FAERS Safety Report 9207988 (Version 1)
Quarter: 2013Q2

REPORT INFORMATION
  Report Type: Spontaneous
  Country: US (occurrence: US)
  Receive Date: 20130403
  Receipt Date: 20130403
  Transmission Date: 20140414
  Serious: Yes (Other)
  Sender: FDA-Public Use
  Company Number: US-BAYER-2013-038981

PATIENT
  Age: 80 Year
  Sex: Male
  Weight: 69.39 kg

DRUGS (6)
  1. PHILLIPS STOOL SOFTENER BULK DOCUSATE [Suspect]
     Indication: CONSTIPATION
     Dosage: 1 DF, QD
     Route: 048
     Dates: start: 20130321, end: 20130324
  2. WARFARIN [Concomitant]
  3. MULTIVITAMIN [Concomitant]
  4. ESTER C [Concomitant]
  5. VITAMIN D [Concomitant]
  6. VITAMIN B12 [Concomitant]

REACTIONS (3)
  - Diverticulitis [None]
  - Throat irritation [Recovered/Resolved]
  - Urinary tract pain [Recovered/Resolved]
